FAERS Safety Report 9285201 (Version 1)
Quarter: 2013Q2

REPORT INFORMATION
  Report Type: Spontaneous
  Country: IT (occurrence: IT)
  Receive Date: 20130513
  Receipt Date: 20130513
  Transmission Date: 20140414
  Serious: Yes (Other)
  Sender: FDA-Public Use
  Company Number: IT-MYLANLABS-2013S1009441

PATIENT
  Age: 84 Year
  Sex: Male

DRUGS (3)
  1. OLANZAPINE [Suspect]
     Indication: PSYCHOTIC DISORDER
     Route: 048
     Dates: start: 20130228, end: 20130325
  2. TRITTICO [Concomitant]
     Indication: INSOMNIA
  3. XANAX [Concomitant]
     Indication: ANXIETY

REACTIONS (3)
  - Agitation [Recovered/Resolved]
  - Delusion [Recovered/Resolved]
  - Product substitution issue [Recovered/Resolved]
